FAERS Safety Report 6252122-0 (Version None)
Quarter: 2009Q2

REPORT INFORMATION
  Report Type: 
  Country: None (occurrence: None)
  Receive Date: 20090630
  Receipt Date: 20061001
  Transmission Date: 20091009
  Serious: Yes (Hospitalization)
  Sender: FDA-Public Use
  Company Number: US-ROCHE-639107

PATIENT
  Sex: Male

DRUGS (6)
  1. ENFUVIRTIDE [Suspect]
     Route: 065
     Dates: start: 20050813, end: 20070313
  2. COMBIVIR [Concomitant]
     Dosage: FREQUENCY REPORTED AS QD
     Dates: start: 20050813, end: 20061201
  3. VIREAD [Concomitant]
     Dosage: FREQUENCY REPORTED AS QD
     Dates: start: 20050813, end: 20070313
  4. KALETRA [Concomitant]
     Dosage: FREQUENCY REPORTED AS QD
     Dates: start: 20050927, end: 20070313
  5. BACTRIM [Concomitant]
     Dosage: FREQUENCY REPORTED AS QD
     Dates: start: 20060706, end: 20070313
  6. ZITHROMAX [Concomitant]
     Dosage: FREQUENCY REPORTED AS EVERY WEEK
     Dates: start: 20060706, end: 20070313

REACTIONS (1)
  - GASTROINTESTINAL DISORDER [None]
